FAERS Safety Report 9280714 (Version 1)
Quarter: 2013Q2

REPORT INFORMATION
  Report Type: Spontaneous
  Country: US (occurrence: US)
  Receive Date: 20130509
  Receipt Date: 20130509
  Transmission Date: 20140414
  Serious: No
  Sender: FDA-Public Use
  Company Number: US-PFIZER INC-2013139009

PATIENT
  Age: 68 Year
  Sex: Female
  Weight: 61.22 kg

DRUGS (9)
  1. CELEBREX [Suspect]
     Indication: ARTHRITIS
     Dosage: 200 MG, 1X/DAY
     Route: 048
  2. CELEBREX [Suspect]
     Indication: BACK PAIN
  3. CRESTOR [Concomitant]
     Dosage: UNK
  4. MICARDIS [Concomitant]
     Dosage: UNK
  5. SPIRIVA [Concomitant]
     Dosage: UNK
  6. ADVIL [Concomitant]
     Dosage: UNK
  7. BABY ASPIRIN [Concomitant]
     Dosage: UNK
  8. LORTAB [Concomitant]
     Dosage: UNK
  9. XANAX [Concomitant]
     Dosage: 0.25 MG, 1X/DAY

REACTIONS (1)
  - Mental disorder [Recovered/Resolved]
